FAERS Safety Report 5268955-3 (Version None)
Quarter: 2007Q1

REPORT INFORMATION
  Report Type: 
  Country: None (occurrence: None)
  Receive Date: 20061214
  Receipt Date: 20060728
  Transmission Date: 20070707
  Serious: Yes (Other)
  Sender: FDA-Public Use
  Company Number: 2006093173

PATIENT
  Age: 88 Year
  Sex: Female
  Weight: 46.7205 kg

DRUGS (5)
  1. XANAX [Suspect]
     Indication: INSOMNIA
     Dates: end: 20060101
  2. LUNESTA [Suspect]
     Indication: INSOMNIA
     Dates: start: 20060709
  3. ACTONEL [Suspect]
     Indication: DRUG USE FOR UNKNOWN INDICATION
     Dates: start: 20060709, end: 20060709
  4. HYZAAR [Concomitant]
  5. ASPIRIN [Concomitant]

REACTIONS (3)
  - DEPENDENCE [None]
  - DRUG INEFFECTIVE [None]
  - MALAISE [None]
